FAERS Safety Report 14660558 (Version 2)
Quarter: 2018Q3

REPORT INFORMATION
  Report Type: Spontaneous
  Country: US (occurrence: US)
  Receive Date: 20180320
  Receipt Date: 20180710
  Transmission Date: 20181010
  Serious: Yes (Other)
  Sender: FDA-Public Use
  Company Number: US-BAYER-2018-049569

PATIENT
  Age: 44 Year
  Sex: Female
  Weight: 174.6 kg

DRUGS (2)
  1. MIRENA [Suspect]
     Active Substance: LEVONORGESTREL
     Indication: CONTRACEPTION
     Dosage: 20 MCG/24HR, CONT
     Route: 015
     Dates: start: 20150607, end: 20180326
  2. SYNTHROID [Concomitant]
     Active Substance: LEVOTHYROXINE SODIUM

REACTIONS (5)
  - Device dislocation [None]
  - Menorrhagia [None]
  - Ovarian cyst [None]
  - Abdominal pain [None]
  - Leiomyoma [None]

NARRATIVE: CASE EVENT DATE: 20180219
